FAERS Safety Report 16714601 (Version 1)
Quarter: 2019Q3

REPORT INFORMATION
  Report Type: Report from Study
  Country: US (occurrence: US)
  Receive Date: 20190819
  Receipt Date: 20190819
  Transmission Date: 20191004
  Serious: Yes (Other)
  Sender: FDA-Public Use
  Company Number: US-ROCHE-2377782

PATIENT
  Sex: Female
  Weight: 76.27 kg

DRUGS (1)
  1. OCREVUS [Suspect]
     Active Substance: OCRELIZUMAB
     Indication: RELAPSING MULTIPLE SCLEROSIS
     Dosage: NEXT DATES OF ADMINISTRATION OF OCRELIZUMAB: 15-AUG-2018, 08-FEB-2019.
     Route: 065
     Dates: start: 20180801

REACTIONS (1)
  - Clostridium difficile infection [Not Recovered/Not Resolved]
